FAERS Safety Report 5431267-9 (Version None)
Quarter: 2007Q3

REPORT INFORMATION
  Report Type: 
  Country: None (occurrence: None)
  Receive Date: 20070830
  Receipt Date: 20070821
  Transmission Date: 20080115
  Serious: Yes (Disabling)
  Sender: FDA-Public Use
  Company Number: NO-ROCHE-509394

PATIENT
  Age: 42 Year
  Sex: Male
  Weight: 90 kg

DRUGS (40)
  1. MYCOPHENOLATE MOFETIL [Suspect]
     Route: 048
     Dates: start: 20060116
  2. MYCOPHENOLATE MOFETIL [Suspect]
     Dosage: DOSE REPORTED AS 750 MG X2
     Route: 048
     Dates: start: 20060130
  3. MYCOPHENOLATE MOFETIL [Suspect]
     Route: 048
     Dates: start: 20060411
  4. RAPAMUNE [Suspect]
     Route: 048
     Dates: start: 20060116
  5. RAPAMUNE [Suspect]
     Route: 048
     Dates: start: 20060125
  6. RAPAMUNE [Suspect]
     Route: 048
     Dates: start: 20060213
  7. RAPAMUNE [Suspect]
     Route: 048
     Dates: start: 20060314
  8. RAPAMUNE [Suspect]
     Dosage: START DATE: UNSPECIFIED DATE IN APRIL 2006
     Route: 048
  9. RAPAMUNE [Suspect]
     Route: 048
     Dates: start: 20060415, end: 20070301
  10. PREDNISOLONE [Suspect]
     Route: 048
     Dates: start: 20060116
  11. PREDNISOLONE [Suspect]
     Route: 048
     Dates: start: 20060125
  12. PREDNISOLONE [Suspect]
     Route: 048
     Dates: start: 20060411
  13. PREDNISOLONE [Suspect]
     Route: 048
     Dates: start: 20060508
  14. PREDNISOLONE [Suspect]
     Route: 048
  15. NEORECORMON [Concomitant]
     Dosage: JAN 2005 - 16 JAN 2006: 4/6000 IU 1/1 WEEK OR 2/1 WEEK IN PERIODS 16 JAN 2006 - MAR 2007: 10 000 IU+
     Route: 058
     Dates: start: 20050101, end: 20070301
  16. CARVEDILOL [Concomitant]
     Dosage: 2/1 DAILY
     Route: 048
     Dates: start: 20060301, end: 20061001
  17. AMLODIPINE [Concomitant]
     Route: 048
  18. PHYSIOTENS [Concomitant]
     Route: 048
  19. LESCOL [Concomitant]
     Route: 048
  20. ALLOPUR [Concomitant]
     Route: 048
     Dates: end: 20060116
  21. RENITEC COMP [Concomitant]
     Route: 048
     Dates: end: 20060116
  22. NATRON [Concomitant]
     Route: 048
     Dates: end: 20060116
  23. MIMPARA [Concomitant]
     Dosage: TAKEN FOR A SHORT PERIOD, FALL 2005
     Route: 048
  24. RENAGEL [Concomitant]
     Dosage: TAKEN 'AT LEAST SOME TIME IN 2005'
     Route: 048
  25. DUROFERON [Concomitant]
     Route: 065
  26. BACTRIM [Concomitant]
     Dosage: TAKEN FOR 6 MONTHS AFTER TRANSPLANTATION
     Route: 048
  27. SELO-ZOK [Concomitant]
     Route: 048
     Dates: end: 20060301
  28. ZANTAC 150 [Concomitant]
     Route: 048
     Dates: end: 20060701
  29. BURINEX [Concomitant]
     Dosage: TABLETS 2 MG + 1 MG/DAY
     Route: 048
     Dates: start: 20060401
  30. CARDURA [Concomitant]
     Dosage: 4/8 MG DEPOT TABLETS 1/1 DAY
  31. SOBRIL [Concomitant]
     Dosage: 30 MG TABLETS AT NIGHT
     Route: 048
  32. FUROSEMIDE [Concomitant]
     Dosage: DOSE REPORTED AS 80 MG
     Dates: start: 20060201
  33. PARACETAMOL [Concomitant]
     Dosage: TABLETS 500-1000 MG, UP TO 3/1 DAILY WHEN NEEDED
     Route: 048
     Dates: start: 20060401
  34. SOLU-MEDROL [Concomitant]
     Dosage: FEB 2006: 1325 MG IN TOTAL APRIL 2006: 2 G IN TOTAL
     Route: 042
     Dates: start: 20060201
  35. ATGAM [Concomitant]
     Dosage: DOSE REPORTED AS 275 MG
     Dates: start: 20060401
  36. PHENAMIN [Concomitant]
     Dosage: DOSE REPORTED AS 5 MG
     Route: 042
     Dates: start: 20060401
  37. CONFORTID [Concomitant]
     Dosage: DOSE REPORTED AS 50 MG
     Dates: start: 20060401
  38. IMODIUM [Concomitant]
     Dates: start: 20060401
  39. RINGER-ACETAT [Concomitant]
     Route: 042
     Dates: start: 20060401
  40. SODIUM CHLORIDE 0.9% [Concomitant]
     Dates: start: 20060401

REACTIONS (9)
  - DEHYDRATION [None]
  - DIARRHOEA [None]
  - HAEMOGLOBIN DECREASED [None]
  - HIP FRACTURE [None]
  - KIDNEY TRANSPLANT REJECTION [None]
  - NAUSEA [None]
  - OSTEOARTHRITIS [None]
  - OSTEONECROSIS [None]
  - RASH [None]
